FAERS Safety Report 10761528 (Version 1)
Quarter: 2015Q1

REPORT INFORMATION
  Report Type: Spontaneous
  Country: US (occurrence: None)
  Receive Date: 20150203
  Receipt Date: 20150203
  Transmission Date: 20150721
  Serious: Yes (Life-Threatening)
  Sender: FDA-Public Use
  Company Number: None

PATIENT
  Age: 48 Year
  Sex: Female
  Weight: 74.39 kg

DRUGS (1)
  1. LEVOTHYROXINE [Suspect]
     Active Substance: LEVOTHYROXINE
     Indication: THYROID HORMONE REPLACEMENT THERAPY
     Route: 048

REACTIONS (6)
  - Paraesthesia oral [None]
  - Paraesthesia [None]
  - Dizziness [None]
  - Somnolence [None]
  - Hypoaesthesia oral [None]
  - Hypoaesthesia [None]

NARRATIVE: CASE EVENT DATE: 20150202
